FAERS Safety Report 13110374 (Version 1)
Quarter: 2017Q1

REPORT INFORMATION
  Report Type: Spontaneous
  Country: US (occurrence: US)
  Receive Date: 20170112
  Receipt Date: 20170112
  Transmission Date: 20170509
  Serious: Yes (Other)
  Sender: FDA-Public Use
  Company Number: US-ROCHE-1099287

PATIENT
  Age: 59 Year
  Sex: Male

DRUGS (4)
  1. ACTIVASE [Suspect]
     Active Substance: ALTEPLASE
     Indication: ACUTE MYOCARDIAL INFARCTION
     Route: 065
     Dates: start: 19891110
  2. HEPARIN [Concomitant]
     Active Substance: HEPARIN SODIUM
     Route: 042
  3. ASPRIN-EC [Concomitant]
  4. MORPHINE [Concomitant]
     Active Substance: MORPHINE
     Route: 065
     Dates: start: 19891110

REACTIONS (2)
  - Ventricular arrhythmia [Recovering/Resolving]
  - Ventricular extrasystoles [Recovering/Resolving]

NARRATIVE: CASE EVENT DATE: 19891111
